FAERS Safety Report 11557806 (Version 1)
Quarter: 2015Q3

REPORT INFORMATION
  Report Type: Spontaneous
  Country: DE (occurrence: None)
  Receive Date: 20150924
  Receipt Date: 20150924
  Transmission Date: 20151125
  Serious: Yes (Other)
  Sender: FDA-Public Use
  Company Number: 2015HINLIT0781

PATIENT
  Sex: Male

DRUGS (1)
  1. ZIDOVUDINE (ZIDOVUDINE) UNKNOWN) [Suspect]
     Active Substance: ZIDOVUDINE
     Indication: ANTIRETROVIRAL THERAPY

REACTIONS (1)
  - Drug-induced liver injury [None]
